FAERS Safety Report 11041010 (Version 2)
Quarter: 2015Q2

REPORT INFORMATION
  Report Type: Spontaneous
  Country: US (occurrence: US)
  Receive Date: 20150416
  Receipt Date: 20150525
  Transmission Date: 20150821
  Serious: No
  Sender: FDA-Public Use
  Company Number: US-JNJFOC-20131107149

PATIENT
  Sex: Female

DRUGS (10)
  1. LOTEMAX [Concomitant]
     Active Substance: LOTEPREDNOL ETABONATE
     Indication: CATARACT OPERATION
     Route: 047
     Dates: start: 20131101
  2. BESIVANCE [Concomitant]
     Active Substance: BESIFLOXACIN
     Indication: CATARACT OPERATION
     Route: 047
     Dates: start: 20131101
  3. ALTACE [Concomitant]
     Active Substance: RAMIPRIL
     Indication: BLOOD PRESSURE
     Route: 048
  4. XARELTO [Suspect]
     Active Substance: RIVAROXABAN
     Indication: THROMBOSIS
     Route: 048
     Dates: start: 201307, end: 2013
  5. HUMALOG [Concomitant]
     Active Substance: INSULIN LISPRO
     Indication: DIABETES MELLITUS
     Dosage: BEFORE MEALS
     Route: 058
  6. RESTASIS [Concomitant]
     Active Substance: CYCLOSPORINE
     Indication: CATARACT OPERATION
     Route: 065
     Dates: start: 201303
  7. AZASITE [Concomitant]
     Active Substance: AZITHROMYCIN MONOHYDRATE
     Indication: CATARACT OPERATION
     Route: 065
     Dates: start: 201303
  8. PROLENSA [Concomitant]
     Active Substance: BROMFENAC SODIUM
     Indication: CATARACT OPERATION
     Route: 047
     Dates: start: 20131101
  9. LEVEMIR [Concomitant]
     Active Substance: INSULIN DETEMIR
     Indication: DIABETES MELLITUS
     Route: 058
  10. XARELTO [Suspect]
     Active Substance: RIVAROXABAN
     Indication: THROMBOSIS
     Route: 048
     Dates: start: 2013

REACTIONS (2)
  - Vulvovaginal pruritus [Not Recovered/Not Resolved]
  - Alopecia [Not Recovered/Not Resolved]

NARRATIVE: CASE EVENT DATE: 2013
